FAERS Safety Report 4880890-9 (Version None)
Quarter: 2005Q4

REPORT INFORMATION
  Report Type: 
  Country: None (occurrence: None)
  Receive Date: 20051223
  Receipt Date: 20051007
  Transmission Date: 20060501
  Serious: No
  Sender: FDA-Public Use
  Company Number: 05P-163-0313113-00

PATIENT
  Age: 51 Year
  Sex: Female
  Weight: 55.7924 kg

DRUGS (7)
  1. HUMIRA [Suspect]
     Indication: RHEUMATOID ARTHRITIS
     Dosage: 40 MG, 1 IN 2 WK, SUBCUTANEOUS
     Route: 058
     Dates: start: 20030101
  2. CELECOXIB [Concomitant]
  3. VICODIN [Concomitant]
  4. METHOTREXATE [Concomitant]
  5. BUSPIRONE HCL [Concomitant]
  6. FIBER CHOICE [Concomitant]
  7. DIPHENHYDRAMINE HCL [Concomitant]

REACTIONS (3)
  - HEADACHE [None]
  - NAUSEA [None]
  - PARANASAL SINUS HYPERSECRETION [None]
